FAERS Safety Report 5214241-7 (Version None)
Quarter: 2007Q1

REPORT INFORMATION
  Report Type: 
  Country: None (occurrence: None)
  Receive Date: 20070122
  Receipt Date: 20070115
  Transmission Date: 20070707
  Serious: Yes (Death, Other)
  Sender: FDA-Public Use
  Company Number: US-JNJFOC-20061203238

PATIENT
  Sex: Female

DRUGS (1)
  1. REMICADE [Suspect]
     Indication: RHEUMATOID ARTHRITIS
     Dosage: AS OF 01-NOV-05, PATIENT HAD RECEIVED 4  INFUSIONS
     Route: 042

REACTIONS (2)
  - LUNG CANCER METASTATIC [None]
  - RESPIRATORY ARREST [None]
